FAERS Safety Report 12201127 (Version 1)
Quarter: 2016Q1

REPORT INFORMATION
  Report Type: Spontaneous
  Country: US (occurrence: US)
  Receive Date: 20160322
  Receipt Date: 20160322
  Transmission Date: 20160526
  Serious: No
  Sender: FDA-Public Use
  Company Number: US-SA-2015SA092444

PATIENT
  Age: 67 Year
  Sex: Female

DRUGS (3)
  1. PROAIR HFA [Concomitant]
     Active Substance: ALBUTEROL SULFATE
     Dosage: TAKEN TO- STOPPED USING THE PROAIR ON FRIDAY
     Route: 065
     Dates: start: 20150603
  2. NASACORT ALLERGY 24HR [Suspect]
     Active Substance: TRIAMCINOLONE ACETONIDE
     Indication: HYPERSENSITIVITY
     Dosage: PRODUCT START DATE-MID APRIL?DOSE-1-2 SPRAYS
     Route: 065
     Dates: end: 20150622
  3. ZYRTEC [Concomitant]
     Active Substance: CETIRIZINE HYDROCHLORIDE
     Dosage: PRODUCT START DATE-MID APRIL
     Route: 065

REACTIONS (2)
  - Pain in extremity [Unknown]
  - Muscle spasms [Unknown]

NARRATIVE: CASE EVENT DATE: 20150617
